FAERS Safety Report 11581880 (Version 1)
Quarter: 2015Q4

REPORT INFORMATION
  Report Type: Spontaneous
  Country: US (occurrence: US)
  Receive Date: 20151001
  Receipt Date: 20151001
  Transmission Date: 20160304
  Serious: No
  Sender: FDA-Public Use
  Company Number: US-ROCHE-655741

PATIENT
  Age: 50 Year
  Sex: Female
  Weight: 64.9 kg

DRUGS (4)
  1. COPEGUS [Suspect]
     Active Substance: RIBAVIRIN
     Indication: HEPATITIS C
     Dosage: TAKEN IN DIVIDED DOSES
     Route: 048
  2. VITAMIN E [Concomitant]
     Active Substance: .ALPHA.-TOCOPHEROL
     Indication: UNEVALUABLE EVENT
     Dosage: DOSE: 400 UNITS, FREQUENCY: DAILY
     Route: 048
  3. UNKNOWN MEDICATION [Concomitant]
     Active Substance: UNSPECIFIED INGREDIENT
     Route: 065
  4. PEGASYS [Suspect]
     Active Substance: PEGINTERFERON ALFA-2A
     Indication: HEPATITIS C
     Dosage: FORM: PRE FILLED SYRINGE
     Route: 030

REACTIONS (23)
  - Full blood count decreased [Not Recovered/Not Resolved]
  - Oral discomfort [Unknown]
  - Sinus headache [Recovering/Resolving]
  - Hypertrichosis [Unknown]
  - Pain in extremity [Not Recovered/Not Resolved]
  - Dyskinesia [Unknown]
  - Dry mouth [Recovered/Resolved]
  - Dry skin [Recovered/Resolved]
  - Vasodilatation [Not Recovered/Not Resolved]
  - Oral pain [Unknown]
  - Headache [Recovered/Resolved]
  - Feeling of body temperature change [Recovering/Resolving]
  - Dizziness [Recovered/Resolved]
  - Decreased appetite [Not Recovered/Not Resolved]
  - Anaemia [Not Recovered/Not Resolved]
  - Weight decreased [Unknown]
  - Eye swelling [Recovered/Resolved]
  - Dysgeusia [Not Recovered/Not Resolved]
  - Rash pruritic [Recovered/Resolved]
  - White blood cell count decreased [Unknown]
  - Rash [Unknown]
  - Eyelid pain [Recovering/Resolving]
  - Sinusitis [Unknown]

NARRATIVE: CASE EVENT DATE: 20090828
